FAERS Safety Report 18805094 (Version 1)
Quarter: 2021Q1

REPORT INFORMATION
  Report Type: Spontaneous
  Country: US (occurrence: US)
  Receive Date: 20210128
  Receipt Date: 20210128
  Transmission Date: 20210419
  Serious: No
  Sender: FDA-Public Use
  Company Number: US-GALDERMA-US2020039530

PATIENT
  Age: 39 Year
  Sex: Female

DRUGS (1)
  1. DIFFERIN GEL [Suspect]
     Active Substance: ADAPALENE
     Indication: ACNE
     Dosage: 0.1%
     Route: 061
     Dates: start: 20200808, end: 20200808

REACTIONS (4)
  - Pruritus [Recovered/Resolved]
  - Rash papular [Recovered/Resolved]
  - Swelling of eyelid [Recovered/Resolved]
  - Hypersensitivity [Recovered/Resolved]

NARRATIVE: CASE EVENT DATE: 20200810
